FAERS Safety Report 6154892-9 (Version None)
Quarter: 2009Q2

REPORT INFORMATION
  Report Type: 
  Country: None (occurrence: None)
  Receive Date: 20090414
  Receipt Date: 20090414
  Transmission Date: 20091009
  Serious: Yes (Hospitalization, Other)
  Sender: FDA-Public Use
  Company Number: US-PFIZER INC-2008100387

PATIENT
  Sex: Female
  Weight: 104 kg

DRUGS (8)
  1. SOLU-MEDROL [Suspect]
     Indication: MULTIPLE SCLEROSIS RELAPSE
     Dosage: 1000 MG, UNK
     Route: 042
     Dates: start: 20080916, end: 20080919
  2. REBIF [Suspect]
     Dosage: 3 IN 1 WEEKS
     Route: 058
     Dates: start: 20070521
  3. HYZAAR [Concomitant]
     Indication: HYPERTENSION
  4. PROTONIX [Concomitant]
     Indication: GASTROOESOPHAGEAL REFLUX DISEASE
  5. NITROFURANTOIN [Concomitant]
     Indication: PROPHYLAXIS URINARY TRACT INFECTION
  6. RESTORIL [Concomitant]
     Indication: SLEEP DISORDER
  7. XANAX [Concomitant]
     Indication: ANXIETY
  8. BACLOFEN [Concomitant]
     Indication: MUSCLE SPASMS
     Dates: start: 20080801

REACTIONS (5)
  - ALOPECIA [None]
  - DIABETES MELLITUS [None]
  - HYPOTHYROIDISM [None]
  - LOSS OF CONSCIOUSNESS [None]
  - MULTIPLE SCLEROSIS RELAPSE [None]
